FAERS Safety Report 7030529-1 (Version None)
Quarter: 2010Q4

REPORT INFORMATION
  Report Type: 
  Country: None (occurrence: None)
  Receive Date: 20101006
  Receipt Date: 20100929
  Transmission Date: 20110411
  Serious: Yes (Hospitalization, Disabling)
  Sender: FDA-Public Use
  Company Number: US-ROCHE-704769

PATIENT
  Sex: Female
  Weight: 79 kg

DRUGS (20)
  1. TRASTUZUMAB [Suspect]
     Indication: BREAST CANCER
     Dosage: FORM: VIALS, DOSE LEVEL: 6MG/KG, LAST DOSE PRIOR TO SAE: 14 MAY 2010
     Route: 042
     Dates: start: 20100128
  2. DOCETAXEL [Suspect]
     Indication: BREAST CANCER
     Dosage: FORM: VIALS, DOSE LEVEL: 60MG/M2
     Route: 042
     Dates: start: 20100128
  3. DOCETAXEL [Suspect]
     Dosage: DOSE LEVEL: 60MG/M2 CYCLE 5, DAY 1
     Route: 042
     Dates: start: 20100423, end: 20100425
  4. CARBOPLATIN [Suspect]
     Indication: BREAST CANCER
     Dosage: FORM: VIALS
     Route: 042
     Dates: start: 20100128
  5. CARBOPLATIN [Suspect]
     Dosage: DOSE LEVEL: 5 AUC CYCLE 5, DAY 1
     Route: 042
     Dates: start: 20100423, end: 20100425
  6. COMPAZINE [Suspect]
     Indication: PRODUCT USED FOR UNKNOWN INDICATION
     Route: 065
     Dates: start: 20100225, end: 20100501
  7. HYDROCHLORTHIAZID [Concomitant]
     Dates: start: 20050101
  8. IBUPROFEN [Concomitant]
     Dates: start: 20090101
  9. QUINIDEX [Concomitant]
     Dosage: DRUG: QUINDEX (OVER THE COUNTER)
     Dates: start: 20090101
  10. COLACE [Concomitant]
     Dates: start: 20090101
  11. BENAZEPRIL HYDROCHLORIDE [Concomitant]
     Dates: start: 20100105
  12. GLUCOPHAGE [Concomitant]
     Dates: start: 20100218
  13. NEULASTA [Concomitant]
     Dates: start: 20100129, end: 20100424
  14. DECADRON [Concomitant]
     Route: 042
     Dates: start: 20100128, end: 20100423
  15. POTASSIUM [Concomitant]
     Route: 048
     Dates: start: 20100405, end: 20100510
  16. POTASSIUM [Concomitant]
     Route: 048
     Dates: start: 20100510
  17. NORMAL SALINE [Concomitant]
     Dates: start: 20100510, end: 20100511
  18. POTASSIUM [Concomitant]
     Route: 042
     Dates: start: 20100510, end: 20100511
  19. CALCIUM [Concomitant]
     Dosage: DRUG: CALCIUM (OVER THE COUNTER)
     Dates: start: 20100510
  20. VITAMINE D [Concomitant]
     Dosage: DRUG: VITAMIN D (OVER THE COUNTER)
     Dates: start: 20100510

REACTIONS (2)
  - DEEP VEIN THROMBOSIS [None]
  - TREMOR [None]
